FAERS Safety Report 18788689 (Version 1)
Quarter: 2021Q1

REPORT INFORMATION
  Report Type: Report from Study
  Country: US (occurrence: US)
  Receive Date: 20210126
  Receipt Date: 20210126
  Transmission Date: 20210419
  Serious: Yes (Death)
  Sender: FDA-Public Use
  Company Number: US-BAUSCH-BL-2021-002841

PATIENT
  Age: 76 Year
  Sex: Female

DRUGS (1)
  1. UCERIS [Suspect]
     Active Substance: BUDESONIDE
     Indication: PRODUCT USED FOR UNKNOWN INDICATION
     Dosage: ABOUT FOUR YEARS AGO
     Route: 048

REACTIONS (2)
  - Type 2 diabetes mellitus [Fatal]
  - Cerebral arteriosclerosis [Fatal]
